APPROVED DRUG PRODUCT: DROSPIRENONE AND ETHINYL ESTRADIOL
Active Ingredient: DROSPIRENONE; ETHINYL ESTRADIOL
Strength: 3MG;0.02MG
Dosage Form/Route: TABLET;ORAL
Application: A211944 | Product #001 | TE Code: AB
Applicant: HETERO LABS LTD
Approved: Mar 22, 2019 | RLD: No | RS: No | Type: RX